FAERS Safety Report 15698342 (Version 2)
Quarter: 2019Q2

REPORT INFORMATION
  Report Type: Spontaneous
  Country: US (occurrence: US)
  Receive Date: 20181207
  Receipt Date: 20190621
  Transmission Date: 20190711
  Serious: No
  Sender: FDA-Public Use
  Company Number: US-PFIZER INC-2018498324

PATIENT
  Age: 39 Year
  Sex: Female

DRUGS (2)
  1. IBUPROFEN. [Suspect]
     Active Substance: IBUPROFEN
     Dosage: UNK
  2. EXCEDRIN [CAFFEINE;PARACETAMOL] [Suspect]
     Active Substance: ACETAMINOPHEN\CAFFEINE
     Dosage: UNK

REACTIONS (2)
  - Gastric disorder [Unknown]
  - Drug hypersensitivity [Unknown]
